FAERS Safety Report 25110612 (Version 1)
Quarter: 2025Q1

REPORT INFORMATION
  Report Type: Spontaneous
  Country: PL (occurrence: PL)
  Receive Date: 20250324
  Receipt Date: 20250324
  Transmission Date: 20250409
  Serious: Yes (Hospitalization, Other)
  Sender: STRIDES
  Company Number: PL-STRIDES ARCOLAB LIMITED-2025SP003826

PATIENT
  Age: 25 Year

DRUGS (2)
  1. CYCLOSPORINE [Suspect]
     Active Substance: CYCLOSPORINE
     Indication: Still^s disease
     Route: 065
  2. METHYLPREDNISOLONE [Concomitant]
     Active Substance: METHYLPREDNISOLONE
     Indication: Still^s disease
     Route: 065

REACTIONS (2)
  - Symptom recurrence [Unknown]
  - Drug ineffective for unapproved indication [Unknown]
